FAERS Safety Report 4731345-3 (Version None)
Quarter: 2005Q3

REPORT INFORMATION
  Report Type: 
  Country: None (occurrence: None)
  Receive Date: 20050802
  Receipt Date: 20050721
  Transmission Date: 20060218
  Serious: Yes (Other)
  Sender: FDA-Public Use
  Company Number: US-NOVOPROD-245724

PATIENT
  Age: 14 Year
  Sex: Male
  Weight: 88 kg

DRUGS (4)
  1. NOVOLOG [Suspect]
     Indication: DIABETES MELLITUS INSULIN-DEPENDENT
     Dosage: 108 IU, QD
     Route: 058
     Dates: start: 20041015, end: 20041021
  2. METFORMIN [Concomitant]
     Indication: DIABETES MELLITUS
     Route: 048
  3. ALTACE [Concomitant]
     Indication: RENAL IMPAIRMENT
     Route: 048
  4. PRAVACHOL [Concomitant]
     Indication: BLOOD CHOLESTEROL INCREASED
     Dosage: UNK
     Route: 048

REACTIONS (4)
  - BLOOD GLUCOSE INCREASED [None]
  - INSULIN RESISTANCE [None]
  - MEDICATION ERROR [None]
  - WRONG DRUG ADMINISTERED [None]
